FAERS Safety Report 14481514 (Version 1)
Quarter: 2018Q1

REPORT INFORMATION
  Report Type: Spontaneous
  Country: US (occurrence: US)
  Receive Date: 20180202
  Receipt Date: 20180202
  Transmission Date: 20180509
  Serious: Yes (Other)
  Sender: FDA-Public Use
  Company Number: PHEH2018US003721

PATIENT
  Sex: Male

DRUGS (1)
  1. VOTRIENT [Suspect]
     Active Substance: PAZOPANIB HYDROCHLORIDE
     Indication: ANAEMIA
     Dosage: 800 MG, QD
     Route: 048
     Dates: start: 20170208

REACTIONS (3)
  - Dry skin [Unknown]
  - Rectal abscess [Unknown]
  - Diarrhoea [Unknown]
